FAERS Safety Report 8340392-4 (Version None)
Quarter: 2012Q2

REPORT INFORMATION
  Report Type: 
  Country: None (occurrence: None)
  Receive Date: 20120507
  Receipt Date: 20090604
  Transmission Date: 20120825
  Serious: Yes (Other)
  Sender: FDA-Public Use
  Company Number: US-TEVA-2009006421

PATIENT
  Sex: Male
  Weight: 119.4 kg

DRUGS (5)
  1. PAXIL [Concomitant]
     Indication: DEPRESSION
  2. SYNTHROID [Concomitant]
     Indication: HYPOTHYROIDISM
  3. TREANDA [Suspect]
     Indication: CHRONIC LYMPHOCYTIC LEUKAEMIA
     Route: 042
     Dates: start: 20090309, end: 20090526
  4. DDAVP [Concomitant]
     Indication: DIABETES INSIPIDUS
  5. BENAZEPRIL HYDROCHLORIDE [Concomitant]
     Indication: HYPERTENSION

REACTIONS (1)
  - ANAPHYLACTIC REACTION [None]
